FAERS Safety Report 10856407 (Version 1)
Quarter: 2015Q1

REPORT INFORMATION
  Report Type: Spontaneous
  Country: US (occurrence: US)
  Receive Date: 20150223
  Receipt Date: 20150223
  Transmission Date: 20150721
  Serious: No
  Sender: FDA-Public Use
  Company Number: US-CELGENEUS-USA-2014114332

PATIENT
  Sex: Female
  Weight: 41.7 kg

DRUGS (2)
  1. RITUXAN [Concomitant]
     Active Substance: RITUXIMAB
     Indication: PRODUCT USED FOR UNKNOWN INDICATION
     Route: 065
  2. REVLIMID [Suspect]
     Active Substance: LENALIDOMIDE
     Dosage: 25 MILLIGRAM
     Route: 048
     Dates: start: 20141017

REACTIONS (5)
  - Dizziness [Unknown]
  - Abdominal pain [Unknown]
  - Night sweats [Unknown]
  - Hot flush [Unknown]
  - Constipation [Recovered/Resolved]
